FAERS Safety Report 15263871 (Version 2)
Quarter: 2018Q3

REPORT INFORMATION
  Report Type: Spontaneous
  Country: US (occurrence: US)
  Receive Date: 20180810
  Receipt Date: 20180810
  Transmission Date: 20181010
  Serious: Yes (Hospitalization)
  Sender: FDA-Public Use
  Company Number: US-TEVA-2018-US-941319

PATIENT
  Age: 30 Year
  Sex: Female

DRUGS (1)
  1. SEASONIQUE [Suspect]
     Active Substance: ETHINYL ESTRADIOL\LEVONORGESTREL
     Indication: PRODUCT USED FOR UNKNOWN INDICATION
     Route: 065

REACTIONS (10)
  - Hepatic adenoma [Unknown]
  - Moaning [Unknown]
  - Pyrexia [Unknown]
  - Pneumonia [Unknown]
  - Pain [Unknown]
  - Seizure [Unknown]
  - Haemorrhage [Unknown]
  - Dystonia [Unknown]
  - Heart rate increased [Unknown]
  - Pleural effusion [Unknown]
